FAERS Safety Report 22150140 (Version 5)
Quarter: 2023Q2

REPORT INFORMATION
  Report Type: Other
  Country: US (occurrence: None)
  Receive Date: 20230329
  Receipt Date: 20230526
  Transmission Date: 20230722
  Serious: Yes (Hospitalization)
  Sender: FDA-Public Use
  Company Number: US-ROCHE-3316120

PATIENT
  Sex: Female

DRUGS (16)
  1. OCRELIZUMAB [Suspect]
     Active Substance: OCRELIZUMAB
     Indication: Multiple sclerosis
     Route: 042
     Dates: start: 20200309
  2. OCRELIZUMAB [Suspect]
     Active Substance: OCRELIZUMAB
     Route: 042
     Dates: start: 20200403
  3. OCRELIZUMAB [Suspect]
     Active Substance: OCRELIZUMAB
     Route: 042
     Dates: start: 20201002
  4. OCRELIZUMAB [Suspect]
     Active Substance: OCRELIZUMAB
     Dosage: SUBSEQUENT DOSES ON : 29/SEP/2021, 04/APR/2022
     Route: 042
     Dates: start: 20210331
  5. BACLOFEN [Concomitant]
     Active Substance: BACLOFEN
     Dates: start: 201910
  6. CALCIUM CARBONATE [Concomitant]
     Active Substance: CALCIUM CARBONATE
     Indication: Nutritional supplementation
     Dates: start: 2007
  7. CLOBETASOL [Concomitant]
     Active Substance: CLOBETASOL
     Dates: start: 201907
  8. GABAPENTIN [Concomitant]
     Active Substance: GABAPENTIN
     Dates: start: 201710
  9. HYDROCHLOROTHIAZIDE [Concomitant]
     Active Substance: HYDROCHLOROTHIAZIDE
     Dates: start: 201710
  10. LOSARTAN [Concomitant]
     Active Substance: LOSARTAN
     Dates: start: 2016
  11. METFORMIN [Concomitant]
     Active Substance: METFORMIN HYDROCHLORIDE
     Dates: start: 201808
  12. PRAVASTATIN [Concomitant]
     Active Substance: PRAVASTATIN
     Dates: start: 201608
  13. VITAMIN C [Concomitant]
     Active Substance: ASCORBIC ACID
     Indication: Nutritional supplementation
     Dates: start: 2015
  14. MELOXICAM [Concomitant]
     Active Substance: MELOXICAM
     Dates: start: 20210115
  15. ALENDRONATE [Concomitant]
     Active Substance: ALENDRONATE SODIUM
     Dates: start: 20210505
  16. AMLODIPINE [Concomitant]
     Active Substance: AMLODIPINE BESYLATE
     Dates: start: 20230101

REACTIONS (5)
  - Osteoarthritis [Recovered/Resolved]
  - Arthralgia [Recovered/Resolved]
  - Tendon rupture [Recovered/Resolved]
  - Arthritis bacterial [Recovered/Resolved]
  - Device related infection [Recovered/Resolved]

NARRATIVE: CASE EVENT DATE: 20200804
